FAERS Safety Report 9357832 (Version 2)
Quarter: 2013Q3

REPORT INFORMATION
  Report Type: Spontaneous
  Country: DK (occurrence: FR)
  Receive Date: 20130620
  Receipt Date: 20130703
  Transmission Date: 20140515
  Serious: Yes (Hospitalization)
  Sender: FDA-Public Use
  Company Number: FR-FRI-1000046030

PATIENT
  Age: 83 Year
  Sex: Female

DRUGS (8)
  1. ESCITALOPRAM [Suspect]
     Dosage: 2 DF
     Route: 048
  2. LOVENOX [Suspect]
     Dosage: 2 DF
     Route: 050
     Dates: start: 20130208, end: 20130210
  3. ASPEGIC ENFANT [Suspect]
     Dosage: 1 DF
     Dates: end: 20130210
  4. SANDOSTATINE [Concomitant]
     Route: 048
     Dates: start: 20130210
  5. PERINDOPRIL [Concomitant]
     Dosage: 2 DF
     Route: 048
     Dates: start: 20130128
  6. PYOSTACINE [Concomitant]
     Dosage: 6 DF
     Route: 048
     Dates: start: 20130129
  7. TAHOR [Concomitant]
     Dosage: 1 DF
     Route: 048
     Dates: start: 20130128
  8. DOMPERIDONE [Concomitant]
     Dosage: 3 DF

REACTIONS (2)
  - Gastric ulcer haemorrhage [Recovered/Resolved]
  - Prescribed overdose [Recovered/Resolved]
